FAERS Safety Report 6519268-0 (Version None)
Quarter: 2009Q4

REPORT INFORMATION
  Report Type: 
  Country: None (occurrence: None)
  Receive Date: 20091228
  Receipt Date: 20091222
  Transmission Date: 20100525
  Serious: Yes (Death, Other)
  Sender: FDA-Public Use
  Company Number: PHHY2009JP44827

PATIENT
  Sex: Male

DRUGS (1)
  1. NEORAL [Suspect]
     Indication: APLASIA PURE RED CELL

REACTIONS (4)
  - APLASIA PURE RED CELL [None]
  - CYTOMEGALOVIRUS INFECTION [None]
  - GENERAL PHYSICAL HEALTH DETERIORATION [None]
  - PANCYTOPENIA [None]
